FAERS Safety Report 9220155 (Version 2)
Quarter: 2013Q2

REPORT INFORMATION
  Report Type: Spontaneous
  Country: US (occurrence: US)
  Receive Date: 20130409
  Receipt Date: 20130418
  Transmission Date: 20140414
  Serious: Yes (Death, Hospitalization, Other)
  Sender: FDA-Public Use
  Company Number: US-ROCHE-1211397

PATIENT
  Age: 9 Year
  Sex: Female

DRUGS (4)
  1. ACTILYSE [Suspect]
     Indication: TRACHEAL OBSTRUCTION
     Route: 065
  2. OSELTAMIVIR [Concomitant]
     Route: 050
  3. VANCOMYCIN [Concomitant]
     Route: 042
  4. MEROPENEM [Concomitant]
     Route: 042

REACTIONS (5)
  - Respiratory tract haemorrhage [Fatal]
  - Pneumonia necrotising [Fatal]
  - Pleurisy [Unknown]
  - Pleural haemorrhage [Unknown]
  - Tracheobronchitis [Unknown]
